FAERS Safety Report 10400624 (Version 1)
Quarter: 2014Q3

REPORT INFORMATION
  Report Type: Spontaneous
  Country: US (occurrence: US)
  Receive Date: 20140821
  Receipt Date: 20140821
  Transmission Date: 20150326
  Serious: No
  Sender: FDA-Public Use
  Company Number: US-ASTRAZENECA-2014SE06103

PATIENT
  Age: 68 Year
  Sex: Female
  Weight: 61.2 kg

DRUGS (2)
  1. SYMBICORT [Suspect]
     Active Substance: BUDESONIDE\FORMOTEROL FUMARATE DIHYDRATE
     Indication: CHRONIC OBSTRUCTIVE PULMONARY DISEASE
     Dosage: 160/4.5, 2 PUFFS BID
     Route: 055
     Dates: start: 201302
  2. BREATHING TREATMENT WITH NEBULIZER. [Concomitant]
     Route: 055

REACTIONS (4)
  - Nasopharyngitis [Recovered/Resolved]
  - Intentional product misuse [Unknown]
  - Drug dose omission [Unknown]
  - Cough [Unknown]
